FAERS Safety Report 23828016 (Version 1)
Quarter: 2024Q2

REPORT INFORMATION
  Report Type: Other
  Country: FR (occurrence: FR)
  Receive Date: 20240507
  Receipt Date: 20240507
  Transmission Date: 20240716
  Serious: Yes (Congenital Anomaly)
  Sender: FDA-Public Use
  Company Number: None

PATIENT

DRUGS (1)
  1. ADALIMUMAB [Suspect]
     Active Substance: ADALIMUMAB\ISOPROPYL ALCOHOL
     Indication: Crohn^s disease
     Dosage: 1 DOSAGE FORM, (EVERY 15 DAYS)
     Route: 042

REACTIONS (2)
  - Congenital central nervous system anomaly [Recovered/Resolved]
  - Abortion induced [Recovered/Resolved]

NARRATIVE: CASE EVENT DATE: 20231130
